FAERS Safety Report 10568915 (Version 1)
Quarter: 2014Q4

REPORT INFORMATION
  Report Type: Spontaneous
  Country: GB (occurrence: GB)
  Receive Date: 20141106
  Receipt Date: 20141106
  Transmission Date: 20150529
  Serious: Yes (Other)
  Sender: FDA-Public Use
  Company Number: GB-TEVA-520110ISR

PATIENT
  Age: 33 Year
  Sex: Female

DRUGS (9)
  1. CLOPIXOL [Interacting]
     Active Substance: ZUCLOPENTHIXOL ACETATE
     Dosage: ZUCLOPENTIXOL DECANOATE DEPOT
     Route: 030
  2. OLANZAPINE. [Suspect]
     Active Substance: OLANZAPINE
     Dosage: 5 MILLIGRAM DAILY;
  3. ABILIFY [Interacting]
     Active Substance: ARIPIPRAZOLE
     Indication: SCHIZOPHRENIA
     Dosage: FROM 15MG TO 20 MG.
     Route: 048
  4. THYROXINE [Concomitant]
     Active Substance: LEVOTHYROXINE
     Dosage: 75 MICROGRAM DAILY;
  5. OLANZAPINE. [Interacting]
     Active Substance: OLANZAPINE
     Dosage: 10 MILLIGRAM DAILY;
     Dates: start: 20140714
  6. ABILIFY [Interacting]
     Active Substance: ARIPIPRAZOLE
     Indication: PARANOIA
     Dosage: FROM 15MG TO 20 MG.
     Route: 048
     Dates: start: 20140714, end: 20140805
  7. METFORMIN [Concomitant]
     Active Substance: METFORMIN HYDROCHLORIDE
     Dosage: 1000 MILLIGRAM DAILY;
  8. ZOPICLONE [Concomitant]
     Active Substance: ZOPICLONE
     Dosage: AT NIGHT
  9. DIAZEPAM. [Concomitant]
     Active Substance: DIAZEPAM

REACTIONS (7)
  - Drug interaction [Unknown]
  - Agitation [Recovered/Resolved]
  - Poor quality sleep [Recovering/Resolving]
  - Off label use [Unknown]
  - Agitation [Recovered/Resolved]
  - Suicidal ideation [Unknown]
  - Psychotic disorder [Recovered/Resolved]

NARRATIVE: CASE EVENT DATE: 201407
